FAERS Safety Report 8882136 (Version 1)
Quarter: 2012Q4

REPORT INFORMATION
  Report Type: 
  Country: IT (occurrence: IT)
  Receive Date: 20121105
  Receipt Date: 20121105
  Transmission Date: 20130627
  Serious: Yes (Other)
  Sender: FDA-Public Use
  Company Number: IT-BRISTOL-MYERS SQUIBB COMPANY-17101569

PATIENT

DRUGS (3)
  1. EFAVIRENZ [Suspect]
     Indication: HIV INFECTION
     Route: 048
  2. RALTEGRAVIR [Suspect]
     Indication: HIV INFECTION
     Dosage: tabs
     Route: 048
  3. TENOFOVIR [Concomitant]

REACTIONS (2)
  - Suicide attempt [Unknown]
  - Psychomotor hyperactivity [Unknown]
